FAERS Safety Report 7496578-4 (Version None)
Quarter: 2011Q2

REPORT INFORMATION
  Report Type: 
  Country: None (occurrence: None)
  Receive Date: 20110523
  Receipt Date: 20110510
  Transmission Date: 20111010
  Serious: Yes (Death, Hospitalization)
  Sender: FDA-Public Use
  Company Number: US-ACTELION-A-NJ2011-48234

PATIENT

DRUGS (1)
  1. TRACLEER [Suspect]
     Indication: PULMONARY ARTERIAL HYPERTENSION
     Dosage: UNK
     Route: 048
     Dates: start: 20110104, end: 20110514

REACTIONS (4)
  - PULMONARY ARTERIAL HYPERTENSION [None]
  - SEPSIS [None]
  - CONDITION AGGRAVATED [None]
  - DYSPNOEA [None]
